FAERS Safety Report 5355124-1 (Version None)
Quarter: 2007Q2

REPORT INFORMATION
  Report Type: 
  Country: None (occurrence: None)
  Receive Date: 20070613
  Receipt Date: 20070607
  Transmission Date: 20071010
  Serious: Yes (Death, Other)
  Sender: FDA-Public Use
  Company Number: PHEH2007US06033

PATIENT
  Age: 72 Year
  Sex: Female

DRUGS (18)
  1. ZOLEDRONATE [Suspect]
     Indication: METASTASES TO BONE
     Dosage: 4MG, Q 4 WEEKS
     Dates: start: 20010320, end: 20070208
  2. LOPRESSOR [Concomitant]
     Dosage: UNK, UNK
  3. DILANTIN [Concomitant]
     Dosage: UNK, UNK
  4. VICODIN [Concomitant]
     Dosage: UNK, UNK
  5. OSCAL [Concomitant]
     Dosage: UNK, UNK
  6. COMPAZINE [Concomitant]
     Dosage: UNK, UNK
  7. K-DUR 10 [Concomitant]
     Dosage: UNK, UNK
  8. DIFLUCAN [Concomitant]
     Dosage: UNK, UNK
  9. LASIX [Concomitant]
     Dosage: UNK, UNK
  10. AROMASIN [Concomitant]
     Dosage: UNK, UNK
  11. XELODA [Concomitant]
     Dosage: UNK, UNK
     Dates: start: 20020101
  12. TAXOTERE [Concomitant]
     Dosage: UNK, UNK
     Dates: start: 20020101
  13. NAVELBINE [Concomitant]
     Dosage: UNK, UNK
     Dates: start: 20040101
  14. FASLODEX [Concomitant]
     Dosage: UNK, UNK
     Dates: start: 20040101
  15. ABRAXANE [Concomitant]
     Dosage: UNK, UNK
     Dates: start: 20060101
  16. ADRIAMYCIN PFS [Concomitant]
     Dosage: UNK, UNK
     Dates: start: 20060101
  17. CYTOXAN [Concomitant]
     Dosage: UNK, UNK
     Dates: start: 20060101
  18. GEMZAR [Concomitant]
     Indication: BREAST CANCER METASTATIC
     Dosage: UNK, UNK

REACTIONS (6)
  - BREAST CANCER METASTATIC [None]
  - FALL [None]
  - INFECTION [None]
  - INJURY [None]
  - OSTEONECROSIS [None]
  - PAIN IN JAW [None]
